FAERS Safety Report 5691958-1 (Version None)
Quarter: 2008Q1

REPORT INFORMATION
  Report Type: 
  Country: None (occurrence: None)
  Receive Date: 20080331
  Receipt Date: 20080318
  Transmission Date: 20080703
  Serious: Yes (Hospitalization, Other)
  Sender: FDA-Public Use
  Company Number: 2007BI026540

PATIENT
  Age: 64 Year
  Sex: Male
  Weight: 95 kg

DRUGS (12)
  1. AVONEX [Suspect]
     Indication: MULTIPLE SCLEROSIS
     Dosage: 30 UG;QW;IM
     Route: 030
     Dates: start: 20040601
  2. CELEBREX [Concomitant]
  3. GABAPENTIN [Concomitant]
  4. OMEPRAZOLE [Concomitant]
  5. PLANUM KAPSELN [Concomitant]
  6. TAMSULOSIN HCL [Concomitant]
  7. IBUPROFEN [Concomitant]
  8. SOVENTOL GEL [Concomitant]
  9. CANESTEN BIFONAZOLE [Concomitant]
  10. IBEROGAST TINKTUR [Concomitant]
  11. OLYNTH [Concomitant]
  12. VOLTAREN [Concomitant]

REACTIONS (19)
  - AORTIC ARTERIOSCLEROSIS [None]
  - BASAL CELL CARCINOMA [None]
  - BENIGN PROSTATIC HYPERPLASIA [None]
  - BLOOD ALKALINE PHOSPHATASE DECREASED [None]
  - C-REACTIVE PROTEIN INCREASED [None]
  - EOSINOPHIL PERCENTAGE DECREASED [None]
  - INJECTION SITE PAIN [None]
  - LYMPH NODES SCAN ABNORMAL [None]
  - LYMPHOCYTE PERCENTAGE DECREASED [None]
  - MALIGNANT MELANOMA [None]
  - METASTASIS [None]
  - MUCOUS MEMBRANE DISORDER [None]
  - NEUTROPHIL PERCENTAGE DECREASED [None]
  - NUCLEAR MAGNETIC RESONANCE IMAGING BRAIN ABNORMAL [None]
  - PRURITUS [None]
  - SCAR [None]
  - SKIN CANCER [None]
  - SWELLING [None]
  - UNEVALUABLE EVENT [None]
